FAERS Safety Report 5334877-2 (Version None)
Quarter: 2007Q2

REPORT INFORMATION
  Report Type: 
  Country: None (occurrence: None)
  Receive Date: 20070525
  Receipt Date: 20070515
  Transmission Date: 20071010
  Serious: Yes (Other)
  Sender: FDA-Public Use
  Company Number: JP-ASTRAZENECA-2007AP02511

PATIENT
  Age: 23681 Day
  Sex: Male

DRUGS (5)
  1. PULMICORT [Suspect]
     Indication: ASTHMA
     Route: 055
     Dates: start: 20070413, end: 20070413
  2. THEOLONG [Concomitant]
     Indication: ASTHMA
     Route: 048
     Dates: start: 20020718
  3. HOKUNALIN [Concomitant]
     Indication: ASTHMA
  4. LENDORMIN [Concomitant]
     Indication: INSOMNIA
     Route: 048
     Dates: start: 20070105
  5. STMERIN D [Concomitant]
     Route: 055

REACTIONS (1)
  - ASTHMA [None]
